FAERS Safety Report 15395597 (Version 2)
Quarter: 2018Q4

REPORT INFORMATION
  Report Type: Spontaneous
  Country: DE (occurrence: DE)
  Receive Date: 20180918
  Receipt Date: 20181122
  Transmission Date: 20190204
  Serious: No
  Sender: FDA-Public Use
  Company Number: DE-JNJFOC-20180907529

PATIENT
  Sex: Male
  Weight: 100 kg

DRUGS (1)
  1. XARELTO [Suspect]
     Active Substance: RIVAROXABAN
     Indication: VENOUS THROMBOSIS LIMB
     Route: 048
     Dates: start: 20180724, end: 20180831

REACTIONS (1)
  - Depressed mood [Recovering/Resolving]
